FAERS Safety Report 10136717 (Version 1)
Quarter: 2014Q2

REPORT INFORMATION
  Report Type: Spontaneous
  Country: US (occurrence: None)
  Receive Date: 20140428
  Receipt Date: 20140428
  Transmission Date: 20141212
  Serious: No
  Sender: FDA-Public Use
  Company Number: None

PATIENT
  Age: 64 Year
  Sex: Male

DRUGS (1)
  1. CIMZIA 200 MG/ML PFS UCB PHARMA [Suspect]
     Dosage: INJECT 2 SYRINGES (400 MG TOTAL) ON WEEKS 0, 2, AND 4?

REACTIONS (1)
  - Skin cancer [None]
